FAERS Safety Report 8476710-6 (Version None)
Quarter: 2012Q2

REPORT INFORMATION
  Report Type: 
  Country: None (occurrence: None)
  Receive Date: 20120628
  Receipt Date: 20120620
  Transmission Date: 20120825
  Serious: Yes (Other)
  Sender: FDA-Public Use
  Company Number: IL-VERTEX PHARMACEUTICALS INC.-000000000000000708

PATIENT
  Age: 62 Year
  Sex: Male

DRUGS (3)
  1. PEGASYS [Concomitant]
     Dosage: DOSAGE FORM: UNKNOWN
     Route: 065
     Dates: start: 20120401
  2. INCIVO [Suspect]
     Indication: PRODUCT USED FOR UNKNOWN INDICATION
     Dosage: DOSAGE FORM: TABLET
     Route: 048
     Dates: start: 20120401
  3. COPEGUS [Concomitant]
     Dosage: DOSAGE FORM: UNKNOWN
     Route: 065
     Dates: start: 20120401

REACTIONS (2)
  - CELLULITIS [None]
  - FULL BLOOD COUNT DECREASED [None]
